FAERS Safety Report 5829261-9 (Version None)
Quarter: 2008Q3

REPORT INFORMATION
  Report Type: 
  Country: None (occurrence: None)
  Receive Date: 20080731
  Receipt Date: 20080711
  Transmission Date: 20090109
  Serious: No
  Sender: FDA-Public Use
  Company Number: US-BOEHRINGER INGELHEIM GMBH, GERMANY-2008-BP-10985BP

PATIENT
  Sex: Female

DRUGS (11)
  1. SPIRIVA [Suspect]
     Indication: CHRONIC OBSTRUCTIVE PULMONARY DISEASE
     Route: 055
     Dates: start: 20070801
  2. ALBUTEROL [Concomitant]
     Indication: CHRONIC OBSTRUCTIVE PULMONARY DISEASE
     Route: 055
     Dates: start: 20070201
  3. ATENOLOL [Concomitant]
     Indication: HEART RATE INCREASED
     Route: 048
     Dates: start: 20020101
  4. ATENOLOL [Concomitant]
     Indication: HYPERTENSION
  5. DIGOXIN [Concomitant]
     Indication: HEART RATE INCREASED
     Route: 048
     Dates: start: 20020101
  6. CLORAZEPATE DIPOTASSIUM [Concomitant]
     Indication: ANXIETY
     Route: 048
     Dates: start: 19930101
  7. BUFFERIN [Concomitant]
     Indication: ANTICOAGULANT THERAPY
     Route: 048
     Dates: start: 20020101
  8. MVT [Concomitant]
     Indication: VITAMIN SUPPLEMENTATION
     Route: 048
  9. CALCIUM [Concomitant]
     Indication: SUPPLEMENTATION THERAPY
     Route: 048
  10. ASCORBIC ACID [Concomitant]
     Indication: SUPPLEMENTATION THERAPY
     Route: 048
  11. OXYGEN [Concomitant]
     Indication: OXYGEN SUPPLEMENTATION
     Route: 055
     Dates: start: 20070101

REACTIONS (5)
  - COUGH [None]
  - DYSPNOEA [None]
  - PRODUCTIVE COUGH [None]
  - RESPIRATORY DEPTH DECREASED [None]
  - SPUTUM DISCOLOURED [None]
